FAERS Safety Report 8338042-6 (Version None)
Quarter: 2012Q2

REPORT INFORMATION
  Report Type: 
  Country: None (occurrence: None)
  Receive Date: 20120504
  Receipt Date: 20120501
  Transmission Date: 20120825
  Serious: Yes (Other)
  Sender: FDA-Public Use
  Company Number: US-PFIZER INC-2012107459

PATIENT
  Sex: Male
  Weight: 85 kg

DRUGS (7)
  1. CALCIUM CARBONATE/FAMOTIDINE/MAGNESIUM HYDROXIDE [Concomitant]
     Indication: FAECES HARD
     Dosage: 100 MG, DAILY
  2. VITAMIN D [Concomitant]
     Dosage: 10000 IU, MONTHLY
  3. LIPITOR [Suspect]
     Indication: MYOCARDIAL INFARCTION
     Dosage: 40 MG DAILY
     Dates: start: 19980101
  4. GLUCOTROL [Suspect]
     Indication: DIABETES MELLITUS
     Dosage: 10 MG, DAILY
     Dates: start: 19980101
  5. ACETYLSALICYLIC ACID [Concomitant]
     Indication: CARDIAC DISORDER
     Dosage: 81 MG, DAILY
  6. FISH OIL [Concomitant]
     Indication: CARDIAC DISORDER
     Dosage: 1200 MG, DAILY
     Route: 048
  7. COENZYME Q10 [Concomitant]
     Indication: CARDIAC DISORDER
     Dosage: 200 MG, DAILY

REACTIONS (1)
  - MYOCARDIAL INFARCTION [None]
